FAERS Safety Report 23686834 (Version 1)
Quarter: 2024Q1

REPORT INFORMATION
  Report Type: Spontaneous
  Country: DE (occurrence: DE)
  Receive Date: 20240329
  Receipt Date: 20240329
  Transmission Date: 20240410
  Serious: Yes (Other)
  Sender: FDA-Public Use
  Company Number: DE-ASTELLAS-2024US008826

PATIENT
  Sex: Male

DRUGS (5)
  1. XTANDI [Suspect]
     Active Substance: ENZALUTAMIDE
     Indication: Prostate cancer metastatic
     Dosage: 160 MG, ONCE DAILY (40 MG X 4 TABLETS)
     Route: 065
     Dates: start: 20240311
  2. BUSERELIN ACETATE [Concomitant]
     Active Substance: BUSERELIN ACETATE
     Indication: Product used for unknown indication
     Dosage: UNK UNK, UNKNOWN FREQ.
     Route: 065
     Dates: start: 20231220
  3. BUSERELIN ACETATE [Concomitant]
     Active Substance: BUSERELIN ACETATE
     Dosage: UNK UNK, UNKNOWN FREQ. (THREE-MONTH DEPOT)
     Route: 065
     Dates: start: 20240219
  4. CANDESARTAN CILEXETIL [Concomitant]
     Active Substance: CANDESARTAN CILEXETIL
     Indication: Hypertension
     Route: 065
     Dates: start: 20240223
  5. CANDESARTAN CILEXETIL [Concomitant]
     Active Substance: CANDESARTAN CILEXETIL
     Route: 065
     Dates: start: 20240302

REACTIONS (9)
  - Polyneuropathy [Unknown]
  - Gait disturbance [Unknown]
  - Facial paresis [Unknown]
  - Headache [Unknown]
  - Dyspnoea [Unknown]
  - Hypokinesia [Unknown]
  - Urinary incontinence [Unknown]
  - Disturbance in attention [Unknown]
  - Apathy [Unknown]

NARRATIVE: CASE EVENT DATE: 20240301
